FAERS Safety Report 5199600-3 (Version None)
Quarter: 2007Q1

REPORT INFORMATION
  Report Type: 
  Country: None (occurrence: None)
  Receive Date: 20070103
  Receipt Date: 20070103
  Transmission Date: 20070707
  Serious: Yes (Other)
  Sender: FDA-Public Use
  Company Number: None

PATIENT
  Age: 60 Year
  Sex: Female
  Weight: 79.3795 kg

DRUGS (1)
  1. FLOVENT HFA [Suspect]
     Indication: COUGH
     Dosage: 2 X DAILY
     Dates: start: 20061217, end: 20061230

REACTIONS (2)
  - EXOSTOSIS [None]
  - ORAL SOFT TISSUE DISORDER [None]
